FAERS Safety Report 8814545 (Version 4)
Quarter: 2013Q2

REPORT INFORMATION
  Report Type: Report from Study
  Country: IT (occurrence: IT)
  Receive Date: 20120928
  Receipt Date: 20130422
  Transmission Date: 20140414
  Serious: Yes (Death, Hospitalization)
  Sender: FDA-Public Use
  Company Number: IT-SANOFI-AVENTIS-2012SA070437

PATIENT
  Age: 56 Year
  Sex: Male
  Weight: 68 kg

DRUGS (8)
  1. LANSOPRAZOLE [Concomitant]
     Indication: GASTRITIS PROPHYLAXIS
     Dates: start: 20120820, end: 20120910
  2. OXYCODONE HYDROCHLORIDE/PARACETAMOL [Concomitant]
     Indication: PAIN
     Dates: start: 20120820, end: 20120910
  3. DEXAMETHASONE [Concomitant]
  4. ONDANSETRON [Concomitant]
  5. RANITIDINE [Concomitant]
  6. TRIMETON [Concomitant]
  7. DOCETAXEL [Suspect]
     Indication: NON-SMALL CELL LUNG CANCER STAGE IV
     Dosage: EVERY THREE WEEKS (DAY 1 OF 21 DAY CYCLE)
     Route: 041
     Dates: start: 20120830, end: 20120830
  8. BLINDED THERAPY [Suspect]
     Indication: NON-SMALL CELL LUNG CANCER STAGE IV
     Dosage: EVERY THREE WEEKS (DAY 1 OF 21 DAY CYCLE)
     Route: 042
     Dates: start: 20120830, end: 20120830

REACTIONS (1)
  - Acute respiratory distress syndrome [Fatal]
